FAERS Safety Report 17791222 (Version 1)
Quarter: 2020Q2

REPORT INFORMATION
  Report Type: Spontaneous
  Country: US (occurrence: US)
  Receive Date: 20200515
  Receipt Date: 20200515
  Transmission Date: 20200714
  Serious: Yes (Hospitalization)
  Sender: FDA-Public Use
  Company Number: None

PATIENT
  Age: 67 Year
  Sex: Male
  Weight: 139.6 kg

DRUGS (1)
  1. NPLATE [Suspect]
     Active Substance: ROMIPLOSTIM
     Indication: IMMUNE THROMBOCYTOPENIA
     Route: 058
     Dates: start: 20200507, end: 20200508

REACTIONS (3)
  - Asthenia [None]
  - Blood uric acid increased [None]
  - Peripheral swelling [None]

NARRATIVE: CASE EVENT DATE: 20200511
